FAERS Safety Report 23916576 (Version 1)
Quarter: 2024Q2

REPORT INFORMATION
  Report Type: Spontaneous
  Country: US (occurrence: None)
  Receive Date: 20240528
  Receipt Date: 20240528
  Transmission Date: 20240716
  Serious: Yes (Hospitalization)
  Sender: FDA-Public Use
  Company Number: None

PATIENT
  Age: 48 Year
  Sex: Female

DRUGS (1)
  1. TAVNEOS [Suspect]
     Active Substance: AVACOPAN
     Dosage: 30 MG TSICE A DAY ORAL
     Route: 048

REACTIONS (3)
  - Dizziness [None]
  - Nausea [None]
  - Heart rate irregular [None]

NARRATIVE: CASE EVENT DATE: 20240528
